FAERS Safety Report 8392311-2 (Version None)
Quarter: 2012Q2

REPORT INFORMATION
  Report Type: 
  Country: None (occurrence: None)
  Receive Date: 20120529
  Receipt Date: 20120514
  Transmission Date: 20120825
  Serious: Yes (Death, Hospitalization)
  Sender: FDA-Public Use
  Company Number: US-ROCHE-77914

PATIENT
  Age: 14 Year
  Sex: Female

DRUGS (4)
  1. ROCEPHIN [Suspect]
     Route: 042
  2. ROCEPHIN [Suspect]
     Indication: PNEUMONIA
     Route: 042
  3. ROCEPHIN [Suspect]
     Route: 042
  4. ROCEPHIN [Suspect]
     Route: 042
     Dates: start: 19970319, end: 19970319

REACTIONS (7)
  - HYPOTENSION [None]
  - DISSEMINATED INTRAVASCULAR COAGULATION [None]
  - TACHYCARDIA [None]
  - INTRAVASCULAR HAEMOLYSIS [None]
  - HAEMOGLOBINURIA [None]
  - PULMONARY OEDEMA [None]
  - HAEMOLYTIC ANAEMIA [None]
